FAERS Safety Report 14032600 (Version 1)
Quarter: 2017Q4

REPORT INFORMATION
  Report Type: Report from Study
  Country: IT (occurrence: IT)
  Receive Date: 20171003
  Receipt Date: 20171003
  Transmission Date: 20180321
  Serious: Yes (Hospitalization)
  Sender: FDA-Public Use
  Company Number: IT-ACCORD-059306

PATIENT
  Age: 82 Year
  Sex: Female

DRUGS (17)
  1. ESIDREX [Suspect]
     Active Substance: HYDROCHLOROTHIAZIDE
     Indication: HYPERTENSION
     Route: 048
  2. SIRDALUD [Concomitant]
     Active Substance: TIZANIDINE
  3. LEXOTAN [Concomitant]
     Active Substance: BROMAZEPAM
     Route: 048
  4. AMLODIPINE [Concomitant]
     Active Substance: AMLODIPINE BESYLATE
  5. CYMBALTA [Suspect]
     Active Substance: DULOXETINE HYDROCHLORIDE
     Indication: NEURALGIA
     Route: 048
     Dates: start: 20170101, end: 20170609
  6. LASIX [Concomitant]
     Active Substance: FUROSEMIDE
  7. CLODY [Concomitant]
     Active Substance: CLODRONATE DISODIUM
  8. DIDROGYL [Concomitant]
     Active Substance: CALCIFEDIOL
     Route: 048
  9. CONTRAMAL [Concomitant]
     Active Substance: TRAMADOL HYDROCHLORIDE
     Route: 048
  10. ASCRIPTIN [Concomitant]
     Active Substance: ASPIRIN
     Route: 048
  11. GABAPENTIN. [Concomitant]
     Active Substance: GABAPENTIN
     Route: 048
  12. SIMVASTATIN. [Concomitant]
     Active Substance: SIMVASTATIN
     Route: 048
  13. RAMIPRIL. [Suspect]
     Active Substance: RAMIPRIL
     Indication: HYPERTENSION
     Route: 048
     Dates: start: 20170101, end: 20170609
  14. TEGRETOL [Concomitant]
     Active Substance: CARBAMAZEPINE
     Route: 048
  15. LANSOPRAZOLE. [Concomitant]
     Active Substance: LANSOPRAZOLE
     Route: 048
  16. EFFERALGAN [Concomitant]
     Active Substance: ACETAMINOPHEN
     Route: 048
  17. CASENLAX [Concomitant]
     Route: 048

REACTIONS (2)
  - Hyponatraemia [Unknown]
  - Bradyphrenia [Unknown]

NARRATIVE: CASE EVENT DATE: 20170609
